FAERS Safety Report 17814901 (Version 2)
Quarter: 2020Q4

REPORT INFORMATION
  Report Type: Other
  Country: US (occurrence: US)
  Receive Date: 20200522
  Receipt Date: 20201224
  Transmission Date: 20210113
  Serious: Yes (Hospitalization, Other)
  Sender: FDA-Public Use
  Company Number: US-ROCHE-2603831

PATIENT
  Sex: Female
  Weight: 107.6 kg

DRUGS (3)
  1. ACTEMRA [Suspect]
     Active Substance: TOCILIZUMAB
     Indication: SARCOIDOSIS
  2. ACTEMRA [Suspect]
     Active Substance: TOCILIZUMAB
     Indication: LUNG NEOPLASM MALIGNANT
     Route: 058
  3. ACTEMRA [Suspect]
     Active Substance: TOCILIZUMAB
     Indication: RHEUMATOID ARTHRITIS

REACTIONS (6)
  - Pneumonia [Unknown]
  - Product dose omission issue [Unknown]
  - Off label use [Unknown]
  - Lung neoplasm malignant [Unknown]
  - Intentional product use issue [Unknown]
  - Dyspnoea [Unknown]
